FAERS Safety Report 16920099 (Version 1)
Quarter: 2019Q4

REPORT INFORMATION
  Report Type: Spontaneous
  Country: US (occurrence: US)
  Receive Date: 20191015
  Receipt Date: 20191015
  Transmission Date: 20200122
  Serious: No
  Sender: FDA-Public Use
  Company Number: None

PATIENT
  Age: 62 Year
  Sex: Male

DRUGS (1)
  1. CAPECITABINE. [Suspect]
     Active Substance: CAPECITABINE
     Indication: GASTRIC CANCER
     Dosage: 1500 MG ORAL BID X 14/21D CYCLE?
     Route: 048
     Dates: start: 20190517

REACTIONS (4)
  - Neuropathy peripheral [None]
  - Condition aggravated [None]
  - Abdominal pain upper [None]
  - Epistaxis [None]
